FAERS Safety Report 8935390 (Version 1)
Quarter: 2012Q4

REPORT INFORMATION
  Report Type: Spontaneous
  Country: US (occurrence: None)
  Receive Date: 20121127
  Receipt Date: 20121127
  Transmission Date: 20130627
  Serious: Yes (Hospitalization)
  Sender: FDA-Public Use
  Company Number: None

PATIENT
  Age: 56 Year
  Sex: Female
  Weight: 60.5 kg

DRUGS (4)
  1. CLOFARABINE [Suspect]
     Indication: ACUTE MYELOID LEUKEMIA
     Route: 042
     Dates: start: 20121017, end: 20121021
  2. CLOFARABINE [Suspect]
     Indication: ACUTE MYELOID LEUKEMIA
     Route: 042
  3. BUSULFAN [Suspect]
     Indication: ACUTE MYELOID LEUKEMIA
     Route: 042
     Dates: start: 20121018, end: 20121021
  4. BUSULFAN [Suspect]
     Indication: ACUTE MYELOID LEUKEMIA
     Route: 042

REACTIONS (6)
  - Eye pain [None]
  - Ocular hyperaemia [None]
  - Dry eye [None]
  - Dry mouth [None]
  - Graft versus host disease [None]
  - Rash [None]
